FAERS Safety Report 24685464 (Version 1)
Quarter: 2024Q4

REPORT INFORMATION
  Report Type: Report from Study
  Country: ES (occurrence: ES)
  Receive Date: 20241202
  Receipt Date: 20241202
  Transmission Date: 20250114
  Serious: Yes (Death)
  Sender: PFIZER
  Company Number: ES-PFIZER INC-PV202400155259

PATIENT
  Sex: Female

DRUGS (1)
  1. DOCETAXEL [Suspect]
     Active Substance: DOCETAXEL
     Indication: Triple negative breast cancer
     Dosage: UNK, CYCLIC

REACTIONS (1)
  - Cardiotoxicity [Fatal]
